FAERS Safety Report 18683013 (Version 1)
Quarter: 2020Q4

REPORT INFORMATION
  Report Type: Other
  Country: KR (occurrence: KR)
  Receive Date: 20201230
  Receipt Date: 20201230
  Transmission Date: 20210114
  Serious: Yes (Other)
  Sender: FDA-Public Use
  Company Number: KR-HEALTHCARE PHARMACEUTICALS LTD.-2103636

PATIENT
  Age: 58 Year
  Sex: Male

DRUGS (4)
  1. DOXORUBICIN HYDROCHLORIDE. [Suspect]
     Active Substance: DOXORUBICIN HYDROCHLORIDE
     Indication: PERIPHERAL T-CELL LYMPHOMA UNSPECIFIED STAGE IV
     Route: 065
  2. VINCRISTINE SULFATE. [Concomitant]
     Active Substance: VINCRISTINE SULFATE
     Route: 065
  3. PREDNISONE. [Concomitant]
     Active Substance: PREDNISONE
     Route: 065
  4. CYCLOPHOSPHAMIDE. [Concomitant]
     Active Substance: CYCLOPHOSPHAMIDE
     Route: 065

REACTIONS (1)
  - Drug ineffective [Unknown]
